FAERS Safety Report 13316633 (Version 2)
Quarter: 2019Q2

REPORT INFORMATION
  Report Type: Report from Study
  Country: US (occurrence: US)
  Receive Date: 20170310
  Receipt Date: 20190516
  Transmission Date: 20190711
  Serious: Yes (Other)
  Sender: FDA-Public Use
  Company Number: US-AMGEN-USASL2017033820

PATIENT
  Age: 76 Year
  Sex: Female

DRUGS (1)
  1. ENBREL [Suspect]
     Active Substance: ETANERCEPT
     Indication: RHEUMATOID ARTHRITIS
     Dosage: UNK
     Route: 065

REACTIONS (7)
  - Fibromyalgia [Unknown]
  - Gastrointestinal disorder [Recovered/Resolved]
  - Unevaluable event [Unknown]
  - Systemic lupus erythematosus [Unknown]
  - Rib fracture [Unknown]
  - Age-related macular degeneration [Unknown]
  - Osteoarthritis [Unknown]
